FAERS Safety Report 8033169-0 (Version None)
Quarter: 2012Q1

REPORT INFORMATION
  Report Type: 
  Country: None (occurrence: None)
  Receive Date: 20120110
  Receipt Date: 20120110
  Transmission Date: 20120608
  Serious: Yes (Other)
  Sender: FDA-Public Use
  Company Number: None

PATIENT
  Age: 55 Year
  Sex: Male
  Weight: 86.182 kg

DRUGS (6)
  1. LISINOPRIL [Concomitant]
  2. BUPROPION HYDROCHLORIDE [Concomitant]
  3. SIMVASTATIN [Concomitant]
  4. METOPROLOL SUCCINATE [Concomitant]
  5. MIRTAZAPINE [Suspect]
     Indication: DEPRESSION
     Dosage: 60 MG
     Route: 048
     Dates: start: 20110605, end: 20110725
  6. NIACIN [Concomitant]

REACTIONS (2)
  - HOSTILITY [None]
  - AGGRESSION [None]
